FAERS Safety Report 7628312-9 (Version None)
Quarter: 2011Q3

REPORT INFORMATION
  Report Type: 
  Country: None (occurrence: None)
  Receive Date: 20110714
  Receipt Date: 20110629
  Transmission Date: 20111222
  Serious: Yes (Other)
  Sender: FDA-Public Use
  Company Number: 2011PV000036

PATIENT
  Sex: Female

DRUGS (3)
  1. DEPOCYT [Suspect]
     Indication: METASTASES TO CENTRAL NERVOUS SYSTEM
     Dosage: X8, INTH
     Route: 037
  2. TEMODAL [Suspect]
     Indication: CENTRAL NERVOUS SYSTEM LYMPHOMA
     Dosage: IV
     Route: 042
  3. RITUXIMAB (RITUXIMAB) [Suspect]
     Indication: CENTRAL NERVOUS SYSTEM LYMPHOMA
     Dosage: IV
     Route: 042

REACTIONS (1)
  - CAUDA EQUINA SYNDROME [None]
